FAERS Safety Report 16429065 (Version 3)
Quarter: 2019Q3

REPORT INFORMATION
  Report Type: Spontaneous
  Country: BR (occurrence: BR)
  Receive Date: 20190614
  Receipt Date: 20190719
  Transmission Date: 20191004
  Serious: Yes (Hospitalization, Disabling, Other)
  Sender: FDA-Public Use
  Company Number: BR-009507513-1905BRA004982

PATIENT
  Age: 43 Year
  Sex: Female
  Weight: 75 kg

DRUGS (7)
  1. TEMODAL [Suspect]
     Active Substance: TEMOZOLOMIDE
     Indication: BRAIN NEOPLASM
     Dosage: 2 CAPSULES OF 180 MG FOR 5 DAYS AND PERFORMS A 28-DAY BREAK
     Route: 048
     Dates: start: 201806
  2. VITAMIN D (UNSPECIFIED) [Concomitant]
     Active Substance: VITAMIN D NOS
     Indication: ROUTINE HEALTH MAINTENANCE
     Dosage: 1 TABLET A DAY
     Dates: start: 2012
  3. OXCARBAZEPINE. [Concomitant]
     Active Substance: OXCARBAZEPINE
     Indication: SEIZURE
     Dosage: 1 TABLET,40 MILLIGRAM, QD
     Dates: start: 2012
  4. NAUSEDRON [Concomitant]
     Active Substance: ONDANSETRON HYDROCHLORIDE
     Dosage: UNK
     Dates: start: 201806
  5. TEMODAL [Suspect]
     Active Substance: TEMOZOLOMIDE
     Dosage: 2 CAPSULES OF 180 MG FOR 5 DAYS AND PERFORMS A 28-DAY BREAK
  6. DULOXETINE HYDROCHLORIDE. [Concomitant]
     Active Substance: DULOXETINE HYDROCHLORIDE
     Indication: HEADACHE
     Dosage: 60 MILLIGRAM, QD
  7. PROPRANOLOL [Concomitant]
     Active Substance: PROPRANOLOL HYDROCHLORIDE
     Indication: TREMOR

REACTIONS (7)
  - Asthenia [Unknown]
  - Constipation [Not Recovered/Not Resolved]
  - Vomiting [Unknown]
  - Platelet count decreased [Not Recovered/Not Resolved]
  - Malaise [Recovering/Resolving]
  - Anaemia [Not Recovered/Not Resolved]
  - Paraesthesia [Unknown]

NARRATIVE: CASE EVENT DATE: 2018
